FAERS Safety Report 9886497 (Version 3)
Quarter: 2014Q3

REPORT INFORMATION
  Report Type: Spontaneous
  Country: US (occurrence: US)
  Receive Date: 20140210
  Receipt Date: 20140908
  Transmission Date: 20150326
  Serious: Yes (Other)
  Sender: FDA-Public Use
  Company Number: US-009507513-1402USA004196

PATIENT
  Sex: Female
  Weight: 68.93 kg

DRUGS (3)
  1. NUVARING [Suspect]
     Active Substance: ETHINYL ESTRADIOL\ETONOGESTREL
     Indication: CONTRACEPTION
     Dosage: 0.12-0.015 MG/24 HR. IN FOR 3 WEEKS, REMOVE 1 WEEK
     Route: 067
  2. NUVARING [Suspect]
     Active Substance: ETHINYL ESTRADIOL\ETONOGESTREL
     Indication: MENSTRUATION IRREGULAR
  3. MACROBID [Concomitant]
     Active Substance: NITROFURANTOIN\NITROFURANTOIN MONOHYDRATE
     Indication: PROPHYLAXIS
     Dosage: 100 MG, UNK
     Route: 048

REACTIONS (17)
  - Decreased appetite [Unknown]
  - Incorrect drug administration duration [Unknown]
  - Embolism arterial [Unknown]
  - Lithotripsy [Unknown]
  - Migraine [Unknown]
  - Menorrhagia [Unknown]
  - Nephrolithiasis [Unknown]
  - Vomiting [Unknown]
  - Urinary tract infection [Unknown]
  - Drug dependence [Unknown]
  - Pituitary-dependent Cushing^s syndrome [Unknown]
  - Dehydration [Unknown]
  - Off label use [Unknown]
  - Dyspareunia [Unknown]
  - Pulmonary embolism [Unknown]
  - Sinus operation [Unknown]
  - Thyroid neoplasm [Unknown]

NARRATIVE: CASE EVENT DATE: 2011
